FAERS Safety Report 4859654-8 (Version None)
Quarter: 2005Q4

REPORT INFORMATION
  Report Type: 
  Country: None (occurrence: None)
  Receive Date: 20051215
  Receipt Date: 20051201
  Transmission Date: 20060501
  Serious: Yes (Other)
  Sender: FDA-Public Use
  Company Number: 12997

PATIENT
  Age: 79 Year
  Sex: Male

DRUGS (9)
  1. AMIODARONE [Suspect]
     Dosage: 200 MG
     Dates: start: 20020101, end: 20050101
  2. LYRICA [Suspect]
     Dosage: 75 MG BID
     Dates: start: 20050101, end: 20050101
  3. WARFARIN [Concomitant]
  4. ISMN [Concomitant]
  5. CLOPIDOGREL [Concomitant]
  6. SIMVASTATIN [Concomitant]
  7. FUROSEMIDE [Concomitant]
  8. CO-DANTHRAMER [Concomitant]
  9. MORPHINE [Concomitant]

REACTIONS (6)
  - BLISTER [None]
  - BRADYCARDIA [None]
  - DRUG INTERACTION [None]
  - RASH ERYTHEMATOUS [None]
  - SKIN DISCOLOURATION [None]
  - SKIN OEDEMA [None]
